FAERS Safety Report 8808646 (Version 2)
Quarter: 2012Q4

REPORT INFORMATION
  Report Type: Spontaneous
  Country: US (occurrence: None)
  Receive Date: 20120919
  Receipt Date: 20121004
  Transmission Date: 20130627
  Serious: Yes (Hospitalization, Other)
  Sender: FDA-Public Use
  Company Number: ADR-2012-01712

PATIENT
  Age: 53 Year
  Sex: Female

DRUGS (1)
  1. LIORESAL [Suspect]

REACTIONS (5)
  - Overdose [None]
  - Vomiting [None]
  - Lethargy [None]
  - Depressed level of consciousness [None]
  - Muscle disorder [None]
